FAERS Safety Report 9670782 (Version 3)
Quarter: 2014Q1

REPORT INFORMATION
  Report Type: Spontaneous
  Country: CA (occurrence: CA)
  Receive Date: 20131106
  Receipt Date: 20140214
  Transmission Date: 20141002
  Serious: Yes (Other)
  Sender: FDA-Public Use
  Company Number: CA-SA-2013SA112459

PATIENT
  Age: 22 Year
  Sex: Female

DRUGS (2)
  1. LANTUS [Suspect]
     Indication: TYPE 1 DIABETES MELLITUS
     Dosage: DOSE: BELIEVES IT IS 20 UNITS AT NIGHT (UNSURE)
     Route: 058
     Dates: start: 201201
  2. NOVORAPID [Suspect]
     Indication: TYPE 1 DIABETES MELLITUS
     Route: 058
     Dates: start: 201201

REACTIONS (3)
  - Erythema nodosum [Not Recovered/Not Resolved]
  - Erythema [Not Recovered/Not Resolved]
  - Blood glucose abnormal [Not Recovered/Not Resolved]
